FAERS Safety Report 5895492-5 (Version None)
Quarter: 2008Q3

REPORT INFORMATION
  Report Type: 
  Country: None (occurrence: None)
  Receive Date: 20080923
  Receipt Date: 20080923
  Transmission Date: 20090109
  Serious: Yes (Other)
  Sender: FDA-Public Use
  Company Number: None

PATIENT
  Sex: Female
  Weight: 65.7716 kg

DRUGS (1)
  1. PRO HEALTH TOOTHPASTE CHREST [Suspect]
     Indication: DENTAL CARE

REACTIONS (2)
  - HYPOAESTHESIA ORAL [None]
  - LIP SWELLING [None]
